FAERS Safety Report 23848516 (Version 1)
Quarter: 2024Q2

REPORT INFORMATION
  Report Type: Report from Study
  Country: US (occurrence: US)
  Receive Date: 20240513
  Receipt Date: 20240513
  Transmission Date: 20240716
  Serious: Yes (Other)
  Sender: FDA-Public Use
  Company Number: US-JNJFOC-20240512720

PATIENT
  Age: 62 Year
  Sex: Male

DRUGS (3)
  1. SPRAVATO [Suspect]
     Active Substance: ESKETAMINE
     Indication: Depression
     Dosage: 56 MG, TOTAL OF 1 DOSE
     Dates: start: 20231113, end: 20231113
  2. SPRAVATO [Suspect]
     Active Substance: ESKETAMINE
     Dosage: 84 MG, TOTAL OF 39 DOSES
     Dates: start: 20231116, end: 20240429
  3. SPRAVATO [Suspect]
     Active Substance: ESKETAMINE
     Dosage: 84 MG, TOTAL OF 1 DOSE
     Dates: start: 20240502, end: 20240502

REACTIONS (2)
  - Blood pressure increased [Recovered/Resolved]
  - Dissociation [Recovered/Resolved]

NARRATIVE: CASE EVENT DATE: 20240502
